FAERS Safety Report 25755349 (Version 2)
Quarter: 2025Q3

REPORT INFORMATION
  Report Type: Report from Study
  Country: CA (occurrence: CA)
  Receive Date: 20250903
  Receipt Date: 20250910
  Transmission Date: 20251021
  Serious: Yes (Other)
  Sender: ROCHE
  Company Number: CA-ROCHE-3438823

PATIENT
  Age: 69 Year
  Sex: Female

DRUGS (8)
  1. ACTEMRA [Suspect]
     Active Substance: TOCILIZUMAB
     Indication: Rheumatoid arthritis
     Dosage: DRUG DOSE FIRST ADMINISTERED IS 162 MG MILLIGRAM(S)
     Route: 058
     Dates: start: 20230828
  2. FOLIC ACID [Concomitant]
     Active Substance: FOLIC ACID
  3. LEVOTHYROXINE SODIUM [Concomitant]
     Active Substance: LEVOTHYROXINE SODIUM
  4. LIOTHYRONINE [Concomitant]
     Active Substance: LIOTHYRONINE
  5. METHOTREXATE [Concomitant]
     Active Substance: METHOTREXATE
  6. PRIMIDONE [Concomitant]
     Active Substance: PRIMIDONE
  7. SULFASALAZINE [Concomitant]
     Active Substance: SULFASALAZINE
  8. SYNTHROID [Concomitant]
     Active Substance: LEVOTHYROXINE SODIUM

REACTIONS (2)
  - Immunosuppression [Unknown]
  - Influenza like illness [Unknown]

NARRATIVE: CASE EVENT DATE: 20230928
